FAERS Safety Report 15122239 (Version 1)
Quarter: 2018Q3

REPORT INFORMATION
  Report Type: Spontaneous
  Country: FR (occurrence: FR)
  Receive Date: 20180709
  Receipt Date: 20180709
  Transmission Date: 20181010
  Serious: Yes (Other)
  Sender: FDA-Public Use
  Company Number: FR-BAYER-2018-126276

PATIENT
  Age: 19 Year
  Sex: Female

DRUGS (1)
  1. KETOPROFEN (SYSTEMIC FORMULATION) [Suspect]
     Active Substance: KETOPROFEN
     Dosage: 1 DF, UNK

REACTIONS (1)
  - Atypical haemolytic uraemic syndrome [None]
